FAERS Safety Report 19019464 (Version 1)
Quarter: 2021Q1

REPORT INFORMATION
  Report Type: Spontaneous
  Country: US (occurrence: US)
  Receive Date: 20210316
  Receipt Date: 20210316
  Transmission Date: 20210420
  Serious: No
  Sender: FDA-Public Use
  Company Number: None

PATIENT
  Age: 66 Year
  Sex: Female
  Weight: 65.77 kg

DRUGS (8)
  1. FISH OIL [Concomitant]
     Active Substance: FISH OIL
  2. ATORVASTATIN 10MG TAB [Suspect]
     Active Substance: ATORVASTATIN CALCIUM
     Indication: BLOOD CHOLESTEROL ABNORMAL
     Dosage: ?          QUANTITY:1 DF DOSAGE FORM;?
     Route: 048
     Dates: start: 20190526, end: 20200106
  3. ASPIRIN. [Concomitant]
     Active Substance: ASPIRIN
  4. CALCIUM CITRATE [Concomitant]
     Active Substance: CALCIUM CITRATE
  5. VITAMIN D [Concomitant]
     Active Substance: VITAMIN D NOS
  6. OMEGA?31 [Concomitant]
  7. MELOXICAM. [Suspect]
     Active Substance: MELOXICAM
  8. TIZANIDINE. [Suspect]
     Active Substance: TIZANIDINE

REACTIONS (3)
  - Insomnia [None]
  - Somnolence [None]
  - Feeling abnormal [None]
